FAERS Safety Report 8607551-4 (Version None)
Quarter: 2012Q3

REPORT INFORMATION
  Report Type: 
  Country: None (occurrence: None)
  Receive Date: 20120821
  Receipt Date: 20120810
  Transmission Date: 20120928
  Serious: Yes (Other)
  Sender: FDA-Public Use
  Company Number: US-BAYER-2012-037890

PATIENT
  Age: 36 Year
  Sex: Female

DRUGS (3)
  1. YASMIN [Suspect]
     Indication: CONTRACEPTION
     Dosage: UNK
     Dates: start: 20100401, end: 20101001
  2. EFFEXOR XR [Concomitant]
     Dosage: 75 MG, UNK
     Route: 048
     Dates: start: 20031014, end: 20031121
  3. MAXALT [Concomitant]
     Dosage: 10 MG, UNK
     Route: 048
     Dates: start: 20030915

REACTIONS (2)
  - THROMBOSIS [None]
  - INJURY [None]
